FAERS Safety Report 5017972-7 (Version None)
Quarter: 2006Q2

REPORT INFORMATION
  Report Type: 
  Country: None (occurrence: None)
  Receive Date: 20060605
  Receipt Date: 20060526
  Transmission Date: 20061013
  Serious: Yes (Other)
  Sender: FDA-Public Use
  Company Number: GB-GLAXOSMITHKLINE-B0425653A

PATIENT
  Age: 43 Year
  Sex: Female

DRUGS (2)
  1. ZYBAN [Suspect]
     Indication: SMOKING CESSATION THERAPY
     Dosage: 150MG PER DAY
     Route: 048
     Dates: start: 20060410, end: 20060510
  2. AMOXICILLIN [Concomitant]
     Indication: URINARY TRACT INFECTION
     Dosage: 250MG PER DAY
     Route: 048
     Dates: start: 20060321, end: 20060326

REACTIONS (1)
  - PSORIASIS [None]
